FAERS Safety Report 9841669 (Version 1)
Quarter: 2013Q4

REPORT INFORMATION
  Report Type: Spontaneous
  Country: US (occurrence: None)
  Receive Date: 20131219
  Receipt Date: 20131219
  Transmission Date: 20140711
  Serious: Yes (Death)
  Sender: FDA-Public Use
  Company Number: 163-20785-13062512

PATIENT
  Age: 12 Year
  Sex: Male
  Weight: 44.8 kg

DRUGS (11)
  1. THALOMID [Suspect]
     Indication: MALIGNANT HISTIOCYTOSIS
     Dosage: 1 IN 1 D
     Route: 048
     Dates: start: 20130530, end: 20130611
  2. BIOTENE [Concomitant]
  3. PROTONIX [Concomitant]
  4. DECADRON (DEXAMETASONE) [Concomitant]
  5. VORICONAZOLE [Concomitant]
  6. CEFEPIME [Concomitant]
  7. ACYCLOVIR [Concomitant]
  8. ZOFRAN [Concomitant]
  9. LASIX [Concomitant]
  10. SORAFENIB [Concomitant]
  11. IVIG [Concomitant]

REACTIONS (2)
  - Malignant histiocytosis [None]
  - Disease progression [None]
